FAERS Safety Report 9286117 (Version 1)
Quarter: 2013Q2

REPORT INFORMATION
  Report Type: Report from Study
  Country: FR (occurrence: FR)
  Receive Date: 20130513
  Receipt Date: 20130513
  Transmission Date: 20140414
  Serious: Yes (Hospitalization)
  Sender: FDA-Public Use
  Company Number: PHHY2013FR045793

PATIENT
  Age: 85 Year
  Sex: Female
  Weight: 48 kg

DRUGS (10)
  1. ACLASTA [Suspect]
     Indication: OSTEOPOROSIS
     Dosage: UNK ONCE PER YEAR
     Route: 042
     Dates: start: 201110
  2. ACLASTA [Suspect]
     Dosage: UNK ONCE PER YEAR
     Route: 042
     Dates: start: 201210
  3. LYSANXIA [Concomitant]
     Dosage: UNK
     Dates: start: 1986, end: 201110
  4. DEROXAT [Concomitant]
     Dosage: UNK
     Dates: start: 1986, end: 201110
  5. DEROXAT [Concomitant]
     Dosage: UNK
     Dates: start: 2012
  6. TETRAZEPAM [Concomitant]
     Dosage: UNK UKN, UNK
     Dates: start: 1986, end: 201110
  7. LEVOTHYROX [Concomitant]
     Dosage: UNK UKN, UNK
     Dates: start: 2012
  8. SINGULAIR [Concomitant]
     Dosage: UNK UKN, UNK
     Dates: start: 2012
  9. VERAPAMIL [Concomitant]
     Dosage: UNK UKN, UNK
     Dates: start: 2012
  10. VITAMIN D [Concomitant]
     Dosage: UNK UKN, UNK
     Dates: start: 2012

REACTIONS (1)
  - Lung disorder [Not Recovered/Not Resolved]
